FAERS Safety Report 6509792-9 (Version None)
Quarter: 2009Q4

REPORT INFORMATION
  Report Type: 
  Country: None (occurrence: None)
  Receive Date: 20091222
  Receipt Date: 20091212
  Transmission Date: 20100525
  Serious: Yes (Hospitalization, Other)
  Sender: FDA-Public Use
  Company Number: US-AMGEN-QUU380087

PATIENT
  Sex: Female

DRUGS (3)
  1. ENBREL [Suspect]
     Indication: RHEUMATOID ARTHRITIS
     Route: 058
     Dates: start: 20080404, end: 20091204
  2. METHOTREXATE [Concomitant]
     Dates: start: 20050101
  3. PLAQUENIL [Concomitant]
     Dates: start: 20010101

REACTIONS (6)
  - ABDOMINAL PAIN LOWER [None]
  - ARTHRALGIA [None]
  - CARPAL TUNNEL SYNDROME [None]
  - FATIGUE [None]
  - MAMMOPLASTY [None]
  - SWELLING [None]
